FAERS Safety Report 17173960 (Version 1)
Quarter: 2019Q4

REPORT INFORMATION
  Report Type: Report from Study
  Country: US (occurrence: US)
  Receive Date: 20191219
  Receipt Date: 20191219
  Transmission Date: 20200122
  Serious: No
  Sender: FDA-Public Use
  Company Number: US-THERATECHNOLOGIES INC.-2019-THE-ERG-000048

PATIENT
  Age: 50 Year
  Sex: Male

DRUGS (1)
  1. EGRIFTA [Suspect]
     Active Substance: TESAMORELIN
     Indication: LIPODYSTROPHY ACQUIRED
     Dosage: 2 MG, QD
     Route: 058
     Dates: start: 20190827

REACTIONS (4)
  - Vitreous floaters [Unknown]
  - Nervousness [Unknown]
  - Irritability [Unknown]
  - Hyperhidrosis [Unknown]

NARRATIVE: CASE EVENT DATE: 20190827
